FAERS Safety Report 25888702 (Version 2)
Quarter: 2025Q4

REPORT INFORMATION
  Report Type: Spontaneous
  Country: US (occurrence: US)
  Receive Date: 20251007
  Receipt Date: 20251021
  Transmission Date: 20260118
  Serious: No
  Sender: DR REDDYS
  Company Number: US-DRL-USA-USA/2025/09/014703

PATIENT
  Sex: Female
  Weight: 52.16 kg

DRUGS (1)
  1. CIPROFLOXACIN\DEXAMETHASONE [Suspect]
     Active Substance: CIPROFLOXACIN\DEXAMETHASONE
     Indication: Ear pain
     Dosage: CIPROFLOXACIN 0.3% AND DEXAMETHASONE 0.1% OTIC
     Route: 001
     Dates: start: 20250813

REACTIONS (2)
  - Intentional product use issue [Unknown]
  - Drug ineffective [Unknown]
